FAERS Safety Report 4645065-7 (Version None)
Quarter: 2005Q2

REPORT INFORMATION
  Report Type: 
  Country: None (occurrence: None)
  Receive Date: 20050422
  Receipt Date: 20050411
  Transmission Date: 20051028
  Serious: Yes (Other)
  Sender: FDA-Public Use
  Company Number: 2005060800

PATIENT
  Sex: Female

DRUGS (1)
  1. DETROL LA [Suspect]
     Indication: ILL-DEFINED DISORDER
     Dosage: 4 MG

REACTIONS (4)
  - CONSTIPATION [None]
  - DIZZINESS [None]
  - MASTOIDITIS [None]
  - PARKINSON'S DISEASE [None]
